FAERS Safety Report 4416419-9 (Version None)
Quarter: 2004Q3

REPORT INFORMATION
  Report Type: 
  Country: None (occurrence: None)
  Receive Date: 20040730
  Receipt Date: 20040715
  Transmission Date: 20050211
  Serious: Yes (Hospitalization)
  Sender: FDA-Public Use
  Company Number: 2004-DE-03943GD

PATIENT
  Age: 56 Year
  Sex: Female

DRUGS (1)
  1. MEGACE [Suspect]
     Indication: HORMONE REPLACEMENT THERAPY

REACTIONS (13)
  - ANHEDONIA [None]
  - DEPRESSION [None]
  - DISTURBANCE IN ATTENTION [None]
  - DISTURBANCE IN SOCIAL BEHAVIOUR [None]
  - IMPAIRED WORK ABILITY [None]
  - JUDGEMENT IMPAIRED [None]
  - MEMORY IMPAIRMENT [None]
  - MENINGIOMA [None]
  - MENTAL IMPAIRMENT [None]
  - NEOPLASM PROGRESSION [None]
  - OEDEMA [None]
  - PERSONALITY CHANGE [None]
  - PROGESTERONE RECEPTOR ASSAY POSITIVE [None]
